FAERS Safety Report 16813145 (Version 1)
Quarter: 2019Q3

REPORT INFORMATION
  Report Type: Other
  Country: US (occurrence: US)
  Receive Date: 20190916
  Receipt Date: 20190916
  Transmission Date: 20191005
  Serious: No
  Sender: FDA-Public Use
  Company Number: US-LEADIANT BIOSCIENCES INC-2019STPI000219

PATIENT
  Sex: Male

DRUGS (11)
  1. MATULANE [Suspect]
     Active Substance: PROCARBAZINE HYDROCHLORIDE
     Indication: PLASMA CELL MYELOMA
     Dosage: 100 MILLIGRAM, QD. DAYS 8 TO 21
     Route: 048
     Dates: start: 20190321
  2. HUMALOG JUNIOR KWIKPEN [Concomitant]
     Active Substance: INSULIN LISPRO
  3. LANTUS [Concomitant]
     Active Substance: INSULIN GLARGINE
  4. FENOFIBRIC ACID. [Concomitant]
     Active Substance: FENOFIBRIC ACID
  5. LEVETIRACETAM. [Concomitant]
     Active Substance: LEVETIRACETAM
  6. LISINOPRIL/HYDROCHLOROTHIAZID [Concomitant]
     Active Substance: HYDROCHLOROTHIAZIDE\LISINOPRIL
  7. VITAMIN B [Concomitant]
     Active Substance: VITAMIN B
  8. VITAMIN D 2000 [Concomitant]
     Active Substance: VITAMIN D NOS
  9. GLYBURIDE. [Concomitant]
     Active Substance: GLYBURIDE
  10. OMEPRAZOLE. [Concomitant]
     Active Substance: OMEPRAZOLE
  11. VITAMIN C [Concomitant]
     Active Substance: ASCORBIC ACID

REACTIONS (2)
  - Constipation [Unknown]
  - Fatigue [Unknown]
